FAERS Safety Report 12441140 (Version 2)
Quarter: 2016Q2

REPORT INFORMATION
  Report Type: Spontaneous
  Country: DE (occurrence: DE)
  Receive Date: 20160607
  Receipt Date: 20160617
  Transmission Date: 20160815
  Serious: Yes (Other)
  Sender: FDA-Public Use
  Company Number: DE-BAUSCH-BL-2016-010983

PATIENT
  Age: 67 Year
  Sex: Male

DRUGS (2)
  1. ZYCLARA [Suspect]
     Active Substance: IMIQUIMOD
     Indication: PRODUCT USED FOR UNKNOWN INDICATION
     Dosage: 1-2 SACHETS DAILY
     Route: 061
     Dates: start: 20160428, end: 201605
  2. ZYCLARA [Suspect]
     Active Substance: IMIQUIMOD
     Dosage: 1-2 SACHETS DAILY
     Route: 061
     Dates: start: 201605, end: 201605

REACTIONS (4)
  - Back pain [Unknown]
  - Eye pain [Recovering/Resolving]
  - Bladder pain [Unknown]
  - Musculoskeletal pain [Not Recovered/Not Resolved]

NARRATIVE: CASE EVENT DATE: 201605
